FAERS Safety Report 22089010 (Version 1)
Quarter: 2023Q1

REPORT INFORMATION
  Report Type: Report from Study
  Country: US (occurrence: US)
  Receive Date: 20230313
  Receipt Date: 20230313
  Transmission Date: 20230418
  Serious: No
  Sender: FDA-Public Use
  Company Number: US-002147023-NVSC2023US057206

PATIENT
  Sex: Female

DRUGS (1)
  1. KISQALI [Suspect]
     Active Substance: RIBOCICLIB
     Indication: Breast cancer
     Dosage: 400 MG, QD
     Route: 048
     Dates: start: 202302

REACTIONS (6)
  - Pollakiuria [Unknown]
  - Bladder discomfort [Unknown]
  - Urinary incontinence [Unknown]
  - Muscle spasms [Unknown]
  - Urinary tract infection [Unknown]
  - White blood cell count decreased [Unknown]
